FAERS Safety Report 21531945 (Version 2)
Quarter: 2022Q4

REPORT INFORMATION
  Report Type: Report from Study
  Country: US (occurrence: None)
  Receive Date: 20221101
  Receipt Date: 20221219
  Transmission Date: 20230113
  Serious: Yes (Other)
  Sender: FDA-Public Use
  Company Number: US-Merck Healthcare KGaA-9360780

PATIENT
  Sex: Male

DRUGS (1)
  1. REBIF [Suspect]
     Active Substance: INTERFERON BETA-1A
     Indication: Multiple sclerosis
     Route: 058
     Dates: start: 20211122

REACTIONS (5)
  - Loss of consciousness [Unknown]
  - Fall [Unknown]
  - Dizziness [Unknown]
  - Dysstasia [Unknown]
  - Asthenia [Unknown]
